FAERS Safety Report 9557784 (Version 1)
Quarter: 2013Q3

REPORT INFORMATION
  Report Type: Spontaneous
  Country: US (occurrence: None)
  Receive Date: 20130726
  Receipt Date: 20130726
  Transmission Date: 20140515
  Serious: Yes (Hospitalization)
  Sender: FDA-Public Use
  Company Number: UTC-027932

PATIENT
  Age: 14 Year
  Sex: Male

DRUGS (3)
  1. REMODULIN [Suspect]
     Indication: PULMONARY ARTERIAL HYPERTENSION
     Dosage: 201.6 UG/KG (0.14 UG/KG,1 IN 1 MIN),INTRAVENOUS DRIP
     Route: 041
     Dates: start: 20110511
  2. ADCIRCA (TADALAFIL) [Concomitant]
  3. TRACLEER (BOSENTAN) [Concomitant]

REACTIONS (1)
  - Pulmonary hypertension [None]
